FAERS Safety Report 6644300-3 (Version None)
Quarter: 2010Q1

REPORT INFORMATION
  Report Type: 
  Country: None (occurrence: None)
  Receive Date: 20100322
  Receipt Date: 20091005
  Transmission Date: 20100710
  Serious: Yes (Death)
  Sender: FDA-Public Use
  Company Number: PHHY2009PH60987

PATIENT

DRUGS (1)
  1. ACLASTA [Suspect]
     Dosage: 5 MG/100ML
     Dates: start: 20081212

REACTIONS (1)
  - DEATH [None]
